FAERS Safety Report 14144847 (Version 1)
Quarter: 2017Q4

REPORT INFORMATION
  Report Type: Spontaneous
  Country: US (occurrence: US)
  Receive Date: 20171031
  Receipt Date: 20171031
  Transmission Date: 20180321
  Serious: No
  Sender: FDA-Public Use
  Company Number: US-BAYER-2017-191213

PATIENT
  Age: 53 Year
  Sex: Female
  Weight: 65 kg

DRUGS (4)
  1. CLARITIN-D 24 HOUR [Suspect]
     Active Substance: LORATADINE\PSEUDOEPHEDRINE SULFATE
     Indication: NASOPHARYNGITIS
  2. OCEAN NASAL [Concomitant]
  3. FLUTICASONE PROPIONATE. [Concomitant]
     Active Substance: FLUTICASONE PROPIONATE
  4. CLARITIN-D 24 HOUR [Suspect]
     Active Substance: LORATADINE\PSEUDOEPHEDRINE SULFATE
     Indication: HYPERSENSITIVITY
     Dosage: 1 DF, BID
     Route: 048
     Dates: start: 201707

REACTIONS (18)
  - Feeling abnormal [Recovering/Resolving]
  - Therapeutic response unexpected [Recovered/Resolved]
  - Dry mouth [Recovered/Resolved]
  - Disturbance in attention [Recovering/Resolving]
  - Headache [Recovered/Resolved]
  - Constipation [Not Recovered/Not Resolved]
  - Middle insomnia [Recovering/Resolving]
  - Vision blurred [Recovered/Resolved]
  - Depressed mood [Recovering/Resolving]
  - Palpitations [Recovered/Resolved]
  - Decreased appetite [Not Recovered/Not Resolved]
  - Amnesia [Recovering/Resolving]
  - Insomnia [Recovering/Resolving]
  - Weight decreased [Recovered/Resolved]
  - Agitation [Recovering/Resolving]
  - Nervousness [Recovering/Resolving]
  - Decreased appetite [Recovering/Resolving]
  - Adverse drug reaction [Unknown]

NARRATIVE: CASE EVENT DATE: 201708
